FAERS Safety Report 17112680 (Version 1)
Quarter: 2019Q4

REPORT INFORMATION
  Report Type: Spontaneous
  Country: US (occurrence: US)
  Receive Date: 20191204
  Receipt Date: 20191204
  Transmission Date: 20200122
  Serious: No
  Sender: FDA-Public Use
  Company Number: US-PTC THERAPEUTICS, INC.-US-2019PTC001382

PATIENT
  Age: 8 Year
  Sex: Male

DRUGS (2)
  1. EMFLAZA [Suspect]
     Active Substance: DEFLAZACORT
     Indication: DUCHENNE MUSCULAR DYSTROPHY
     Dosage: 18 MG, QD
     Route: 048
     Dates: start: 20191010, end: 20191011
  2. EMFLAZA [Suspect]
     Active Substance: DEFLAZACORT
     Dosage: 0.45 MG, SINGLE
     Dates: start: 20191015

REACTIONS (6)
  - Screaming [Unknown]
  - Inappropriate affect [Unknown]
  - Crying [Unknown]
  - Anger [Unknown]
  - Irritability [Unknown]
  - Abnormal behaviour [Unknown]

NARRATIVE: CASE EVENT DATE: 201910
